FAERS Safety Report 16433075 (Version 1)
Quarter: 2019Q2

REPORT INFORMATION
  Report Type: Spontaneous
  Country: CN (occurrence: CN)
  Receive Date: 20190614
  Receipt Date: 20190614
  Transmission Date: 20190711
  Serious: Yes (Other)
  Sender: FDA-Public Use
  Company Number: CN-FRESENIUS KABI-FK201906559

PATIENT
  Age: 67 Year
  Sex: Female

DRUGS (3)
  1. LIPOVENOES MCT 20% [Suspect]
     Active Substance: EGG PHOSPHOLIPIDS\GLYCERIN\MEDIUM-CHAIN TRIGLYCERIDES\SOYBEAN OIL
     Indication: HEPATIC MASS
     Dosage: 250ML, QD
     Route: 041
     Dates: start: 20190602, end: 20190602
  2. PANAX GINSENG/OPHIOPOGON JAPONICUS ROOT TUBER [Concomitant]
     Indication: HEPATIC MASS
     Dosage: 50ML QD
     Route: 041
     Dates: start: 20190602, end: 20190603
  3. AMINO ACIDS NOS [Concomitant]
     Active Substance: AMINO ACIDS
     Indication: HEPATIC MASS
     Dosage: 250ML QD
     Route: 041
     Dates: start: 20190602, end: 20190602

REACTIONS (3)
  - Pyrexia [Recovering/Resolving]
  - Chills [Recovering/Resolving]
  - Temperature intolerance [Recovering/Resolving]

NARRATIVE: CASE EVENT DATE: 20190602
